FAERS Safety Report 15674897 (Version 2)
Quarter: 2018Q4

REPORT INFORMATION
  Report Type: Spontaneous
  Country: JP (occurrence: JP)
  Receive Date: 20181130
  Receipt Date: 20181203
  Transmission Date: 20190205
  Serious: Yes (Other)
  Sender: FDA-Public Use
  Company Number: JP-009507513-1811JPN002672J

PATIENT

DRUGS (1)
  1. KEYTRUDA [Suspect]
     Active Substance: PEMBROLIZUMAB
     Indication: NON-SMALL CELL LUNG CANCER
     Dosage: UNK
     Route: 040

REACTIONS (9)
  - Rash [Unknown]
  - Type 1 diabetes mellitus [Unknown]
  - Infection [Unknown]
  - Malaise [Unknown]
  - Thrombosis [Unknown]
  - Interstitial lung disease [Unknown]
  - Liver disorder [Unknown]
  - Colitis [Unknown]
  - Adrenal insufficiency [Unknown]
